FAERS Safety Report 4458280-2 (Version None)
Quarter: 2004Q3

REPORT INFORMATION
  Report Type: 
  Country: None (occurrence: None)
  Receive Date: 20040917
  Receipt Date: 20031202
  Transmission Date: 20050211
  Serious: Yes (Hospitalization)
  Sender: FDA-Public Use
  Company Number: US-JNJFOC-20031201008

PATIENT
  Sex: Male

DRUGS (1)
  1. TOPAMAX [Suspect]
     Indication: CONVULSION
     Dosage: SEE IMAGE
     Route: 048

REACTIONS (6)
  - AGGRESSION [None]
  - ASTHENIA [None]
  - CONVULSION [None]
  - DYSPNOEA [None]
  - PHARYNGITIS [None]
  - VISION BLURRED [None]
